FAERS Safety Report 13967266 (Version 2)
Quarter: 2017Q3

REPORT INFORMATION
  Report Type: Report from Study
  Country: None (occurrence: AU)
  Receive Date: 20170914
  Receipt Date: 20170917
  Transmission Date: 20171128
  Serious: Yes (Hospitalization)
  Sender: FDA-Public Use
  Company Number: AU-ABBVIE-17K-008-2101854-00

PATIENT
  Age: 80 Year
  Sex: Male

DRUGS (1)
  1. DUODOPA [Suspect]
     Active Substance: CARBIDOPA\LEVODOPA
     Indication: PARKINSON^S DISEASE
     Dosage: 16HOURLY
     Route: 050
     Dates: start: 20161012

REACTIONS (4)
  - Stoma site discharge [Not Recovered/Not Resolved]
  - Stoma site hypergranulation [Not Recovered/Not Resolved]
  - Pericarditis [Unknown]
  - Stoma site infection [Not Recovered/Not Resolved]

NARRATIVE: CASE EVENT DATE: 20170913
